FAERS Safety Report 4924276-7 (Version None)
Quarter: 2006Q1

REPORT INFORMATION
  Report Type: 
  Country: None (occurrence: None)
  Receive Date: 20060227
  Receipt Date: 20060217
  Transmission Date: 20060701
  Serious: Yes (Hospitalization, Other)
  Sender: FDA-Public Use
  Company Number: US-JNJFOC-20050103169

PATIENT
  Sex: Female
  Weight: 58.06 kg

DRUGS (3)
  1. REMICADE [Suspect]
     Indication: CHONDRITIS
     Route: 042
  2. AVELAT [Concomitant]
     Indication: HYPERTENSION
     Route: 065
  3. SYNTHROID [Concomitant]
     Route: 065

REACTIONS (3)
  - PERITONEAL TUBERCULOSIS [None]
  - PULMONARY EMBOLISM [None]
  - THROMBOSIS [None]
